FAERS Safety Report 4587138-3 (Version None)
Quarter: 2005Q1

REPORT INFORMATION
  Report Type: 
  Country: None (occurrence: None)
  Receive Date: 20050215
  Receipt Date: 20050207
  Transmission Date: 20050727
  Serious: Yes (Hospitalization, Other)
  Sender: FDA-Public Use
  Company Number: 163-20785-05020214

PATIENT

DRUGS (3)
  1. THALOMID [Suspect]
     Indication: MYELODYSPLASTIC SYNDROME
     Dosage: 100 MG, QHS, ORAL
     Route: 048
  2. ARSENIC TRIOXIDE (ARSENIC TRIOXIDE) [Suspect]
     Indication: MYELODYSPLASTIC SYNDROME
     Dosage: 0.25 MG/KG,QD 5 DAYS A WK, 2 WKS ON, 2 WKS OFF, INTRAVENOUS
     Route: 042
  3. PYRIDOXINE (PYRIDOXINE) [Concomitant]

REACTIONS (7)
  - DYSPNOEA [None]
  - FUNGAL INFECTION [None]
  - HAEMORRHAGE [None]
  - HYPOXIA [None]
  - LARYNGEAL CANCER [None]
  - PULMONARY EMBOLISM [None]
  - SEPSIS [None]
